FAERS Safety Report 21703174 (Version 3)
Quarter: 2024Q4

REPORT INFORMATION
  Report Type: Report from Study
  Country: CA (occurrence: CA)
  Receive Date: 20221209
  Receipt Date: 20241227
  Transmission Date: 20250115
  Serious: Yes (Other)
  Sender: JOHNSON AND JOHNSON
  Company Number: CA-JNJFOC-20221134852

PATIENT
  Age: 15 Year
  Sex: Female
  Weight: 56 kg

DRUGS (5)
  1. REMICADE [Suspect]
     Active Substance: INFLIXIMAB
     Indication: Colitis ulcerative
     Dosage: PRESCRIBED 10 MG/KG AT WEEK 0,1,4 AND THEN EVERY 4 WEEKS.
     Route: 042
     Dates: start: 20221126
  2. REMICADE [Suspect]
     Active Substance: INFLIXIMAB
     Dosage: PATIENT RECEIVED 2ND DOSE OF INFLIXIMAB, RECOMBINANT ON 04-DEC-2022, AND PARTIAL MAYO SURVEY WAS COM
     Route: 042
     Dates: start: 2022
  3. REMICADE [Suspect]
     Active Substance: INFLIXIMAB
     Dosage: 7.5 MG/KG EVERY 4 WEEKS FOR 2 INFUSIONS
     Route: 042
  4. REMICADE [Suspect]
     Active Substance: INFLIXIMAB
     Route: 042
  5. TOBRAMYCIN [Concomitant]
     Active Substance: TOBRAMYCIN\TOBRAMYCIN SULFATE
     Indication: Conjunctivitis
     Route: 047
     Dates: start: 20221123

REACTIONS (5)
  - Haematochezia [Recovering/Resolving]
  - General physical health deterioration [Unknown]
  - Abdominal pain [Recovering/Resolving]
  - Frequent bowel movements [Unknown]
  - Off label use [Unknown]

NARRATIVE: CASE EVENT DATE: 20221126
